FAERS Safety Report 4959999-7 (Version None)
Quarter: 2006Q1

REPORT INFORMATION
  Report Type: 
  Country: None (occurrence: None)
  Receive Date: 20060331
  Receipt Date: 20060109
  Transmission Date: 20060701
  Serious: Yes (Death, Hospitalization)
  Sender: FDA-Public Use
  Company Number: US-MERCK-0601USA01441

PATIENT
  Age: 74 Year
  Sex: Female
  Weight: 45 kg

DRUGS (12)
  1. VIOXX [Suspect]
     Indication: ARTHRALGIA
     Route: 048
     Dates: start: 19991112, end: 20040713
  2. VIOXX [Suspect]
     Route: 048
     Dates: start: 19991112, end: 20040713
  3. AMBIEN [Concomitant]
     Route: 065
  4. ATENOLOL [Concomitant]
     Route: 065
  5. DIPHENOXYLATE HYDROCHLORIDE [Concomitant]
     Route: 065
  6. ESTRACE [Concomitant]
     Route: 065
  7. LIPITOR [Concomitant]
     Route: 065
  8. MIACALCIN [Concomitant]
     Route: 065
  9. NORVASC [Concomitant]
     Route: 065
  10. PROPULSID [Concomitant]
     Route: 065
  11. TIGAN [Concomitant]
     Route: 065
  12. TRIMETHOBENZAMIDE HYDROCHLORIDE [Concomitant]
     Route: 065

REACTIONS (8)
  - CEREBRAL HAEMORRHAGE [None]
  - CEREBROVASCULAR ACCIDENT [None]
  - CROHN'S DISEASE [None]
  - DYSPHAGIA [None]
  - HAEMORRHAGE INTRACRANIAL [None]
  - HYPERTENSION [None]
  - HYPERTENSIVE HEART DISEASE [None]
  - STARVATION [None]
